FAERS Safety Report 11797024 (Version 2)
Quarter: 2016Q2

REPORT INFORMATION
  Report Type: Spontaneous
  Country: ES (occurrence: ES)
  Receive Date: 20151203
  Receipt Date: 20160408
  Transmission Date: 20160815
  Serious: Yes (Hospitalization, Other)
  Sender: FDA-Public Use
  Company Number: ES-ELI_LILLY_AND_COMPANY-ES201511007812

PATIENT
  Age: 60 Year
  Sex: Male

DRUGS (10)
  1. TRAMADOL. [Concomitant]
     Active Substance: TRAMADOL
     Dosage: 200 MG, QD
  2. MIRTAZAPINE. [Concomitant]
     Active Substance: MIRTAZAPINE
     Dosage: 30 MG, QD
  3. MASTICAL D [Concomitant]
     Dosage: 500 MG, UNK
     Dates: start: 201510
  4. CALCIUM + VITAMIN D                /01483701/ [Concomitant]
     Active Substance: CALCIUM\VITAMIN D
     Indication: OSTEOPOROSIS
     Dosage: UNK, UNKNOWN
     Route: 065
  5. ANAFRANIL [Concomitant]
     Active Substance: CLOMIPRAMINE HYDROCHLORIDE
     Indication: DEPRESSED MOOD
     Dosage: 75 MG, UNK
  6. LUMINAL                            /00023201/ [Concomitant]
     Active Substance: PHENOBARBITAL SODIUM
     Indication: EPILEPSY
     Dosage: 100 MG, QD
  7. FORSTEO [Suspect]
     Active Substance: TERIPARATIDE
     Indication: OSTEOPOROSIS
     Dosage: 20 UG, QD
     Route: 058
     Dates: start: 20141204, end: 201510
  8. LORAZEPAM. [Concomitant]
     Active Substance: LORAZEPAM
     Dosage: 2 MG, QD
  9. CARBAMAZEPINE. [Concomitant]
     Active Substance: CARBAMAZEPINE
     Indication: EPILEPSY
     Dosage: 600 MG, TID
  10. FENTANYL. [Concomitant]
     Active Substance: FENTANYL
     Indication: PAIN
     Dosage: UNK, UNKNOWN
     Route: 065

REACTIONS (6)
  - Myalgia [Unknown]
  - Treponema test positive [Unknown]
  - Nephrotic syndrome [Not Recovered/Not Resolved]
  - Hypertension [Unknown]
  - Arthralgia [Unknown]
  - Hyperuricaemia [Unknown]

NARRATIVE: CASE EVENT DATE: 201509
